FAERS Safety Report 4664628-6 (Version None)
Quarter: 2005Q2

REPORT INFORMATION
  Report Type: 
  Country: None (occurrence: None)
  Receive Date: 20050518
  Receipt Date: 20050401
  Transmission Date: 20051028
  Serious: Yes (Hospitalization)
  Sender: FDA-Public Use
  Company Number: JP-ROCHE-401937

PATIENT
  Age: 49 Year
  Sex: Female

DRUGS (8)
  1. TAMIFLU [Suspect]
     Route: 048
     Dates: start: 20050305, end: 20050306
  2. PL [Concomitant]
     Indication: DRUG USE FOR UNKNOWN INDICATION
     Route: 048
     Dates: start: 20050305, end: 20050306
  3. MEDICON [Concomitant]
     Indication: DRUG USE FOR UNKNOWN INDICATION
     Route: 048
     Dates: start: 20050305, end: 20050306
  4. AMBROXOL HYDROCHLORIDE [Concomitant]
     Indication: DRUG USE FOR UNKNOWN INDICATION
     Dosage: DRUG NAME REPORTED AS ^SOLOMUCO^
     Route: 048
     Dates: start: 20050305, end: 20050306
  5. FLOMOX [Concomitant]
     Indication: DRUG USE FOR UNKNOWN INDICATION
     Route: 048
     Dates: start: 20050305, end: 20050306
  6. SOLDEM [Concomitant]
     Indication: DRUG USE FOR UNKNOWN INDICATION
     Route: 041
     Dates: start: 20050305, end: 20050305
  7. OTHER MEDICATION [Concomitant]
     Indication: DRUG USE FOR UNKNOWN INDICATION
     Dosage: DRUG NAME REPORTED AS ^BEASLIMIN^
     Route: 041
     Dates: start: 20050305, end: 20050305
  8. VIT C TAB [Concomitant]
     Indication: DRUG USE FOR UNKNOWN INDICATION
     Route: 041
     Dates: start: 20050305, end: 20050305

REACTIONS (3)
  - HAEMATOCHEZIA [None]
  - LARGE INTESTINAL ULCER [None]
  - MELAENA [None]
